FAERS Safety Report 7778973-9 (Version None)
Quarter: 2011Q3

REPORT INFORMATION
  Report Type: 
  Country: None (occurrence: None)
  Receive Date: 20110926
  Receipt Date: 20110916
  Transmission Date: 20111222
  Serious: Yes (Other)
  Sender: FDA-Public Use
  Company Number: US-BAYER-2011-087948

PATIENT
  Age: 63 Year
  Sex: Male

DRUGS (3)
  1. VARDENAFIL HYDROCHLORIDE (LEVITRA) [Suspect]
     Dosage: ONE TABLET BY MOUTH 1 HOUR BEFORE SEXUAL ACTIVITY, USED TWO TIMES
     Dates: start: 20110301, end: 20110401
  2. ZOLPIDEM TARTRATE [Concomitant]
     Indication: INSOMNIA
     Dosage: DAILY DOSE 10 MG
     Route: 048
     Dates: start: 20090101
  3. FONDAPARINUX SODIUM [Concomitant]
     Indication: DEEP VEIN THROMBOSIS
     Dosage: DAILY DOSE 7.5 MG
     Route: 058
     Dates: start: 20110808

REACTIONS (1)
  - OPTIC ISCHAEMIC NEUROPATHY [None]
